FAERS Safety Report 4430445-5 (Version None)
Quarter: 2004Q3

REPORT INFORMATION
  Report Type: 
  Country: None (occurrence: None)
  Receive Date: 20040721
  Receipt Date: 20030611
  Transmission Date: 20050211
  Serious: Yes (Other)
  Sender: FDA-Public Use
  Company Number: WAES 0306USA01521

PATIENT
  Sex: Female

DRUGS (1)
  1. VIOXX [Suspect]
     Dosage: 12.5 MG/BID/PO
     Route: 048
     Dates: end: 20030601

REACTIONS (2)
  - RECTAL HAEMORRHAGE [None]
  - STEVENS-JOHNSON SYNDROME [None]
